FAERS Safety Report 25722948 (Version 1)
Quarter: 2025Q3

REPORT INFORMATION
  Report Type: Spontaneous
  Country: US (occurrence: US)
  Receive Date: 20250825
  Receipt Date: 20250825
  Transmission Date: 20251021
  Serious: Yes (Hospitalization, Other)
  Sender: TEVA
  Company Number: US-TEVA-VS-3363934

PATIENT
  Age: 24 Year
  Sex: Male

DRUGS (1)
  1. UZEDY [Suspect]
     Active Substance: RISPERIDONE
     Indication: Schizophrenia
     Route: 058
     Dates: start: 20250526

REACTIONS (4)
  - Psychotic disorder [Unknown]
  - Impaired work ability [Unknown]
  - Psychotic behaviour [Unknown]
  - Imprisonment [Unknown]

NARRATIVE: CASE EVENT DATE: 20250101
